FAERS Safety Report 9776947 (Version 2)
Quarter: 2013Q4

REPORT INFORMATION
  Report Type: Spontaneous
  Country: US (occurrence: US)
  Receive Date: 20131221
  Receipt Date: 20131221
  Transmission Date: 20140711
  Serious: No
  Sender: FDA-Public Use
  Company Number: 2013SP002939

PATIENT
  Age: 68 Year
  Sex: Male

DRUGS (2)
  1. VANCOMYCIN [Suspect]
     Indication: INFECTION
     Route: 048
     Dates: start: 20130305, end: 201303
  2. VANCOMYCIN [Suspect]
     Indication: INFECTION
     Route: 048
     Dates: start: 201303

REACTIONS (1)
  - Incorrect route of drug administration [Unknown]
